FAERS Safety Report 9999361 (Version 2)
Quarter: 2014Q1

REPORT INFORMATION
  Report Type: Spontaneous
  Country: GB (occurrence: GB)
  Receive Date: 20140312
  Receipt Date: 20140312
  Transmission Date: 20141002
  Serious: Yes (Death, Hospitalization)
  Sender: FDA-Public Use
  Company Number: GB-BAXTER-2014BAX003903

PATIENT
  Age: 74 Year
  Sex: Male
  Weight: 115 kg

DRUGS (5)
  1. DIANEAL PD4 GLUCOSE 1.36% W/V / 13.6 MG/ML [Suspect]
     Indication: PERITONEAL DIALYSIS
     Dosage: 2 BAGS DAILY
     Route: 033
     Dates: start: 20130910, end: 20131010
  2. DIANEAL PD4 GLUCOSE 2.27% W/V / 22.7 MG/ML [Suspect]
     Indication: PERITONEAL DIALYSIS
     Dosage: 1 BAG DAILY
     Route: 033
     Dates: start: 20130910, end: 20131010
  3. DIANEAL PD4 GLUCOSE 2.27% W/V / 22.7 MG/ML [Suspect]
     Dosage: 2 BAGS DAILY
     Route: 033
     Dates: start: 20131011, end: 20140117
  4. EXTRANEAL (ICODEXTRIN 7.5%) SOLUTION FOR PERITONEAL DIALYSIS [Suspect]
     Indication: PERITONEAL DIALYSIS
     Dosage: 1 BAG DAILY
     Route: 033
     Dates: start: 20130910, end: 20131010
  5. EXTRANEAL (ICODEXTRIN 7.5%) SOLUTION FOR PERITONEAL DIALYSIS [Suspect]
     Dosage: 1 BAG DAILY
     Route: 033
     Dates: start: 20131011, end: 20140117

REACTIONS (2)
  - Chronic obstructive pulmonary disease [Fatal]
  - Ultrafiltration failure [Unknown]
